FAERS Safety Report 8248131-2 (Version None)
Quarter: 2012Q1

REPORT INFORMATION
  Report Type: 
  Country: None (occurrence: None)
  Receive Date: 20120330
  Receipt Date: 20120327
  Transmission Date: 20120608
  Serious: Yes (Other)
  Sender: FDA-Public Use
  Company Number: JP-B.I. PHARMACEUTICALS,INC./RIDGEFIELD-2012-BP-04702NB

PATIENT
  Age: 74 Year
  Sex: Male

DRUGS (7)
  1. RABEPRAZOLE SODIUM [Concomitant]
     Dosage: 10 MG
     Route: 048
  2. PRADAXA [Suspect]
     Indication: PROPHYLAXIS
     Dosage: 220 MG
     Route: 048
  3. PRADAXA [Suspect]
     Dosage: 300 MG
     Route: 048
     Dates: end: 20110516
  4. BEPRICOR [Concomitant]
     Dosage: 50 MG
     Route: 048
  5. GASMOTIN [Concomitant]
     Dosage: 150 MG
     Route: 048
  6. PRADAXA [Suspect]
     Dosage: 150 MG
     Route: 048
     Dates: start: 20110516, end: 20120309
  7. SELBEX [Concomitant]
     Dosage: 150 MG
     Route: 048

REACTIONS (1)
  - CEREBRAL INFARCTION [None]
